FAERS Safety Report 23177242 (Version 1)
Quarter: 2023Q4

REPORT INFORMATION
  Report Type: Spontaneous
  Country: US (occurrence: None)
  Receive Date: 20231110
  Receipt Date: 20231110
  Transmission Date: 20240110
  Serious: Yes (unspecified)
  Sender: FDA-Public Use
  Company Number: None

PATIENT
  Age: 73 Year
  Sex: Female

DRUGS (1)
  1. BOTOX [Suspect]
     Active Substance: ONABOTULINUMTOXINA
     Dosage: OTHER QUANTITY : UP TO 200 UNITS;?OTHER FREQUENCY : EVERY 12;?

REACTIONS (5)
  - Nonspecific reaction [None]
  - Feeling hot [None]
  - Dyskinesia [None]
  - Peripheral swelling [None]
  - Pain in extremity [None]
